FAERS Safety Report 10585046 (Version 3)
Quarter: 2015Q2

REPORT INFORMATION
  Report Type: Report from Study
  Country: DE (occurrence: DE)
  Receive Date: 20141114
  Receipt Date: 20150401
  Transmission Date: 20150821
  Serious: Yes (Hospitalization)
  Sender: FDA-Public Use
  Company Number: DE-TEVA-522712GER

PATIENT
  Age: 45 Year
  Sex: Female
  Weight: 78 kg

DRUGS (5)
  1. GEMCITABINE [Suspect]
     Active Substance: GEMCITABINE\GEMCITABINE HYDROCHLORIDE
     Indication: BREAST CANCER FEMALE
     Dosage: 1840 MG, D1 AND D8, Q3W; LAST DOSE PRIOR TO SAE: 04-NOV-2014
     Route: 042
     Dates: start: 20141104
  2. ABRAXANE [Suspect]
     Active Substance: PACLITAXEL
     Indication: BREAST CANCER FEMALE
     Dosage: 230 MG, D1 AND D8 Q3W; LAST DOSE PRIOR TO SAE: 04-NOV-2014
     Route: 042
     Dates: start: 20141104
  3. BUSCOPAN [Concomitant]
     Active Substance: BUTYLSCOPOLAMINE BROMIDE
     Dosage: 10 MILLIGRAM DAILY;
     Dates: start: 20141106, end: 20141108
  4. NOVALGIN [Concomitant]
     Active Substance: METAMIZOLE SODIUM
     Dosage: 1500 MILLIGRAM DAILY;
     Dates: start: 20141106, end: 20141108
  5. MOVICOL [Concomitant]
     Active Substance: POLYETHYLENE GLYCOL 3350\POTASSIUM CHLORIDE\SODIUM BICARBONATE\SODIUM CHLORIDE
     Dosage: 3 DOSAGE FORMS DAILY; 3 PIECES PER DAY
     Dates: start: 20141106

REACTIONS (1)
  - Abdominal pain [Recovered/Resolved]

NARRATIVE: CASE EVENT DATE: 20141106
